FAERS Safety Report 16344053 (Version 2)
Quarter: 2019Q2

REPORT INFORMATION
  Report Type: Report from Study
  Country: DE (occurrence: DE)
  Receive Date: 20190522
  Receipt Date: 20190602
  Transmission Date: 20190711
  Serious: Yes (Other)
  Sender: FDA-Public Use
  Company Number: DE-AMGEN-DEUNI2019077675

PATIENT
  Age: 69 Year
  Sex: Male
  Weight: 92 kg

DRUGS (20)
  1. FOLINIC ACID [Suspect]
     Active Substance: LEUCOVORIN
     Dosage: 840 MILLIGRAM
     Route: 065
     Dates: start: 20190513
  2. FLUOROURACIL. [Suspect]
     Active Substance: FLUOROURACIL
     Dosage: 4990 MILLIGRAM
     Route: 042
     Dates: start: 20190306
  3. IRINOTECAN [Suspect]
     Active Substance: IRINOTECAN
     Indication: COLORECTAL CANCER METASTATIC
     Dosage: 374 MILLIGRAM
     Route: 065
     Dates: start: 20190306
  4. IRINOTECAN [Suspect]
     Active Substance: IRINOTECAN
     Dosage: 380 MILLIGRAM
     Route: 065
     Dates: start: 20190513
  5. PANTOZOL [Concomitant]
     Active Substance: PANTOPRAZOLE SODIUM
     Indication: PROPHYLAXIS
     Dosage: 40 MILLIGRAM, QD
     Route: 048
     Dates: start: 201601
  6. APREPITANT. [Concomitant]
     Active Substance: APREPITANT
     Indication: PROPHYLAXIS
     Dosage: 150 MILLIGRAM, PER CYCLE
     Route: 042
     Dates: start: 20190306, end: 20190402
  7. FLUOROURACIL. [Suspect]
     Active Substance: FLUOROURACIL
     Dosage: 5060 MILLIGRAM
     Route: 042
     Dates: start: 20190513
  8. FLUOROURACIL. [Suspect]
     Active Substance: FLUOROURACIL
     Indication: COLORECTAL CANCER METASTATIC
     Dosage: 830 MILLIGRAM
     Route: 040
     Dates: start: 20190306
  9. FLUOROURACIL. [Suspect]
     Active Substance: FLUOROURACIL
     Dosage: 5020 MILLIGRAM
     Route: 042
     Dates: start: 20190527
  10. DEXAMETHASON [DEXAMETHASONE] [Concomitant]
     Active Substance: DEXAMETHASONE
     Indication: PROPHYLAXIS
     Dosage: 8 MILLIGRAM, PER CYCLE
     Route: 042
     Dates: start: 20190306
  11. GRANISETRON [Concomitant]
     Active Substance: GRANISETRON
     Indication: PROPHYLAXIS
     Dosage: 1-4 MILLIGRAM, PER CYCLE
     Dates: start: 20190306
  12. QUILONUM [LITHIUM CARBONATE] [Concomitant]
     Active Substance: LITHIUM CARBONATE
     Indication: BIPOLAR DISORDER
     Dosage: UNK MILLIGRAM, TWICE DAILY
     Route: 048
     Dates: start: 1989
  13. PANITUMUMAB [Suspect]
     Active Substance: PANITUMUMAB
     Indication: COLORECTAL CANCER METASTATIC
     Dosage: 552 MILLIGRAM
     Route: 042
     Dates: start: 20190306
  14. IRINOTECAN [Suspect]
     Active Substance: IRINOTECAN
     Dosage: 376 MILLIGRAM
     Route: 065
     Dates: start: 20190527
  15. ATROPIN [ATROPINE] [Concomitant]
     Indication: PROPHYLAXIS
     Dosage: 0.25 MILLIGRAM, PER CYCLE
     Route: 058
     Dates: start: 20190306
  16. NOVALGIN (METAMIZOLE SODIUM) [Concomitant]
     Active Substance: METAMIZOLE SODIUM
     Indication: PAIN
     Dosage: 500 MILLIGRAM, AS NECESSARY
     Route: 048
     Dates: start: 201902, end: 2019
  17. FOLINIC ACID [Suspect]
     Active Substance: LEUCOVORIN
     Indication: COLORECTAL CANCER METASTATIC
     Dosage: 830 MILLIGRAM
     Route: 065
     Dates: start: 20190306
  18. ESIDRIX [Concomitant]
     Active Substance: HYDROCHLOROTHIAZIDE
     Indication: OEDEMA
     Dosage: 25 MILLIGRAM, QD
     Route: 048
     Dates: start: 20190402
  19. PARACETAMOL [Concomitant]
     Active Substance: ACETAMINOPHEN
     Indication: PAIN
     Dosage: 500 MILLIGRAM, AS NECESSARY
     Route: 048
     Dates: start: 201902, end: 2019
  20. JODID [Concomitant]
     Active Substance: IODINE
     Indication: HYPOTHYROIDISM
     Dosage: 200 MICROGRAM, QD
     Route: 048
     Dates: start: 1989, end: 201905

REACTIONS (1)
  - Subcutaneous abscess [Not Recovered/Not Resolved]

NARRATIVE: CASE EVENT DATE: 20190407
